FAERS Safety Report 5066503-4 (Version None)
Quarter: 2006Q3

REPORT INFORMATION
  Report Type: 
  Country: None (occurrence: None)
  Receive Date: 20060801
  Receipt Date: 20051130
  Transmission Date: 20061208
  Serious: Yes (Hospitalization)
  Sender: FDA-Public Use
  Company Number: US-BRISTOL-MYERS SQUIBB COMPANY-13200241

PATIENT
  Age: 60 Year
  Sex: Female

DRUGS (2)
  1. IXABEPILONE [Suspect]
     Indication: BREAST CANCER
     Dosage: THERAPY INITIATED 30-AUG-2005.(PER PROTOCOL GIVEN EVERY 3 WEEKS).
     Route: 042
     Dates: start: 20051101, end: 20051101
  2. CAPECITABINE [Suspect]
     Indication: BREAST CANCER
     Dosage: THERAPY INITIATED 30-AUG-2005.
     Route: 048
     Dates: start: 20051101, end: 20051112

REACTIONS (1)
  - THROMBOSIS [None]
